FAERS Safety Report 5931885-5 (Version None)
Quarter: 2008Q4

REPORT INFORMATION
  Report Type: 
  Country: None (occurrence: None)
  Receive Date: 20081027
  Receipt Date: 20081020
  Transmission Date: 20090506
  Serious: Yes (Death, Other)
  Sender: FDA-Public Use
  Company Number: US-CELGENEUS-056-20785-07050886

PATIENT

DRUGS (1)
  1. THALIDOMIDE [Suspect]
     Indication: MYELODYSPLASTIC SYNDROME
     Dosage: 50-200 MG
     Route: 048
     Dates: start: 20030101, end: 20051001

REACTIONS (12)
  - ACUTE MYELOID LEUKAEMIA [None]
  - CARDIAC DISORDER [None]
  - CONSTIPATION [None]
  - DEATH [None]
  - DEEP VEIN THROMBOSIS [None]
  - DIZZINESS [None]
  - FATIGUE [None]
  - ISCHAEMIC STROKE [None]
  - NEUROPATHY PERIPHERAL [None]
  - NEUTROPENIA [None]
  - SOMNOLENCE [None]
  - THROMBOCYTOPENIA [None]
